FAERS Safety Report 23993932 (Version 1)
Quarter: 2024Q2

REPORT INFORMATION
  Report Type: Spontaneous
  Country: CZ (occurrence: CZ)
  Receive Date: 20240620
  Receipt Date: 20240620
  Transmission Date: 20240715
  Serious: Yes (Other)
  Sender: FDA-Public Use
  Company Number: CZ-MYLANLABS-2024M1055474

PATIENT
  Sex: Male

DRUGS (14)
  1. TOBRAMYCIN [Suspect]
     Active Substance: TOBRAMYCIN\TOBRAMYCIN SULFATE
     Indication: Mycobacterium abscessus infection
     Dosage: UNK
     Route: 055
  2. TOBRAMYCIN [Suspect]
     Active Substance: TOBRAMYCIN\TOBRAMYCIN SULFATE
     Indication: Cystic fibrosis
  3. AZITHROMYCIN [Suspect]
     Active Substance: AZITHROMYCIN
     Indication: Mycobacterium abscessus infection
     Dosage: UNK
     Route: 065
  4. AZITHROMYCIN [Suspect]
     Active Substance: AZITHROMYCIN
     Indication: Cystic fibrosis
  5. LINEZOLID [Suspect]
     Active Substance: LINEZOLID
     Indication: Mycobacterium abscessus infection
     Dosage: UNK
     Route: 065
  6. LINEZOLID [Suspect]
     Active Substance: LINEZOLID
     Indication: Cystic fibrosis
  7. AMIKACIN [Suspect]
     Active Substance: AMIKACIN
     Indication: Mycobacterium abscessus infection
     Dosage: UNK
     Route: 065
  8. AMIKACIN [Suspect]
     Active Substance: AMIKACIN
     Indication: Cystic fibrosis
  9. IMIPENEM [Suspect]
     Active Substance: IMIPENEM
     Indication: Mycobacterium abscessus infection
     Dosage: UNK
     Route: 065
  10. IMIPENEM [Suspect]
     Active Substance: IMIPENEM
     Indication: Cystic fibrosis
  11. IVACAFTOR\LUMACAFTOR [Suspect]
     Active Substance: IVACAFTOR\LUMACAFTOR
     Indication: Mycobacterium abscessus infection
     Dosage: UNK
     Route: 065
  12. IVACAFTOR\LUMACAFTOR [Suspect]
     Active Substance: IVACAFTOR\LUMACAFTOR
     Indication: Cystic fibrosis
  13. MOXIFLOXACIN [Suspect]
     Active Substance: MOXIFLOXACIN
     Indication: Mycobacterium abscessus infection
     Dosage: UNK
     Route: 065
  14. MOXIFLOXACIN [Suspect]
     Active Substance: MOXIFLOXACIN
     Indication: Cystic fibrosis

REACTIONS (1)
  - Drug ineffective [Unknown]
